FAERS Safety Report 8440098-7 (Version None)
Quarter: 2012Q2

REPORT INFORMATION
  Report Type: 
  Country: None (occurrence: None)
  Receive Date: 20120615
  Receipt Date: 20120608
  Transmission Date: 20120825
  Serious: Yes (Hospitalization, Other)
  Sender: FDA-Public Use
  Company Number: ES-ELI_LILLY_AND_COMPANY-ES201206002844

PATIENT
  Sex: Female
  Weight: 80 kg

DRUGS (4)
  1. CARVEDILOL [Concomitant]
     Indication: ARRHYTHMIA
     Dosage: UNK, QD
     Route: 048
     Dates: end: 20120501
  2. ATACAND [Concomitant]
     Indication: HYPERTENSION
     Dosage: 32 MG, QD
     Route: 048
     Dates: end: 20120501
  3. ASPIRIN [Concomitant]
     Indication: ARRHYTHMIA
     Dosage: UNK, QD
     Route: 048
     Dates: end: 20120501
  4. FORTEO [Suspect]
     Indication: OSTEOPOROSIS
     Dosage: 20 UG, QD
     Route: 058
     Dates: start: 20101129, end: 20120528

REACTIONS (2)
  - MYOCARDIAL INFARCTION [None]
  - RENAL FAILURE [None]
